FAERS Safety Report 14998107 (Version 1)
Quarter: 2018Q2

REPORT INFORMATION
  Report Type: Spontaneous
  Country: FI (occurrence: FI)
  Receive Date: 20180611
  Receipt Date: 20180611
  Transmission Date: 20180711
  Serious: Yes (Other)
  Sender: FDA-Public Use
  Company Number: FI-ARBOR PHARMACEUTICALS, LLC-FI-2018ARB000630

PATIENT
  Sex: Female

DRUGS (1)
  1. TRIPTODUR [Suspect]
     Active Substance: TRIPTORELIN
     Indication: IN VITRO FERTILISATION
     Dosage: 0.1 MG, SINGLE
     Route: 058

REACTIONS (2)
  - Abortion spontaneous [Unknown]
  - Ectopic pregnancy [Unknown]
